FAERS Safety Report 10776121 (Version 1)
Quarter: 2015Q1

REPORT INFORMATION
  Report Type: Spontaneous
  Country: US (occurrence: None)
  Receive Date: 20150205
  Receipt Date: 20150205
  Transmission Date: 20150721
  Serious: No
  Sender: FDA-Public Use
  Company Number: None

PATIENT

DRUGS (2)
  1. TOLTERODINE TARTRATE EXTENDED RELEASE [Suspect]
     Active Substance: TOLTERODINE TARTRATE
     Dosage: DOSAGE FORM: CAPSULE, ADM ROUTE: ORAL, STRENGTH: 2 MG, TYPE: UNIT DOSE TABLETS
     Route: 048
  2. TOLTERODINE TARTRATE EXTENDED RELEASE [Suspect]
     Active Substance: TOLTERODINE TARTRATE
     Dosage: DOSAGE FORM: CAPSULE, ADM ROUTE: ORAL, STRENGTH: 4 MG, TYPE: UNIT DOSE
     Route: 048

REACTIONS (2)
  - Product packaging issue [None]
  - Product label confusion [None]
